FAERS Safety Report 9424762 (Version 1)
Quarter: 2013Q3

REPORT INFORMATION
  Report Type: Spontaneous
  Country: BR (occurrence: BR)
  Receive Date: 20130729
  Receipt Date: 20130729
  Transmission Date: 20140515
  Serious: Yes (Hospitalization, Other)
  Sender: FDA-Public Use
  Company Number: BR-PFIZER INC-2013218170

PATIENT
  Age: 59 Year
  Sex: Male

DRUGS (11)
  1. ATENOLOL [Suspect]
     Dosage: 25 MG, DAILY
     Route: 048
     Dates: start: 2003
  2. CRESTOR [Suspect]
     Indication: BLOOD TRIGLYCERIDES INCREASED
     Dosage: 10 MG, DAILY
     Route: 048
     Dates: start: 200812, end: 2011
  3. CRESTOR [Suspect]
     Indication: BLOOD CHOLESTEROL INCREASED
     Dosage: 10 MG, QOD
     Route: 048
     Dates: start: 2011
  4. BRILINTA [Suspect]
     Indication: ACUTE MYOCARDIAL INFARCTION
     Dosage: 90 MG, 2X/DAY
     Route: 048
     Dates: start: 201307
  5. ALPHAGAN [Concomitant]
     Indication: INTRAOCULAR PRESSURE INCREASED
     Dosage: TWO TIMES A DAY
     Dates: start: 2004
  6. ASA [Concomitant]
     Dosage: UNK
     Dates: start: 2004
  7. PLAVIX [Concomitant]
     Indication: PROPHYLAXIS
     Dosage: UNK
     Dates: start: 2004, end: 2005
  8. PLAVIX [Concomitant]
     Dosage: UNK
     Route: 065
     Dates: start: 2008, end: 201307
  9. GLIFAGE [Concomitant]
     Indication: DIABETES MELLITUS
     Dosage: UNK
     Dates: start: 2007
  10. ARADOIS [Concomitant]
     Dosage: DAILY
     Dates: start: 2008
  11. LESCOL [Concomitant]
     Dosage: UNK
     Dates: end: 200812

REACTIONS (6)
  - Chest pain [Recovered/Resolved]
  - Diabetes mellitus [Recovered/Resolved]
  - Device occlusion [Recovered/Resolved]
  - Acute myocardial infarction [Recovered/Resolved]
  - Intraocular pressure increased [Recovering/Resolving]
  - Weight decreased [Recovering/Resolving]
